FAERS Safety Report 9274755 (Version 1)
Quarter: 2013Q2

REPORT INFORMATION
  Report Type: Spontaneous
  Country: US (occurrence: None)
  Receive Date: 20130429
  Receipt Date: 20130429
  Transmission Date: 20140414
  Serious: Yes (Hospitalization)
  Sender: FDA-Public Use
  Company Number: FK201301301

PATIENT
  Age: 18 Year
  Sex: Male

DRUGS (3)
  1. LEVETIRACETAM [Suspect]
     Indication: CONVULSION
  2. PHENYTOIN [Suspect]
     Indication: CONVULSION
  3. PREDNISONE (PREDNISONE) [Concomitant]

REACTIONS (2)
  - Drug reaction with eosinophilia and systemic symptoms [None]
  - Blood pressure decreased [None]
